FAERS Safety Report 9479145 (Version 1)
Quarter: 2013Q3

REPORT INFORMATION
  Report Type: Report from Study
  Country: AR (occurrence: AR)
  Receive Date: 20130827
  Receipt Date: 20130827
  Transmission Date: 20140515
  Serious: Yes (Other)
  Sender: FDA-Public Use
  Company Number: AR-BRISTOL-MYERS SQUIBB COMPANY-19177229

PATIENT
  Sex: Female

DRUGS (1)
  1. NULOJIX [Suspect]

REACTIONS (2)
  - Removal of renal transplant [Unknown]
  - Infection [Unknown]
